FAERS Safety Report 6558930-0 (Version None)
Quarter: 2010Q1

REPORT INFORMATION
  Report Type: 
  Country: None (occurrence: None)
  Receive Date: 20100129
  Receipt Date: 20100127
  Transmission Date: 20100710
  Serious: Yes (Death)
  Sender: FDA-Public Use
  Company Number: US-GENENTECH-296968

PATIENT
  Age: 75 Year
  Sex: Male
  Weight: 93.424 kg

DRUGS (1)
  1. RANIBIZUMAB [Suspect]
     Indication: CHOROID MELANOMA
     Dosage: 10 MG/ML, 1/MONTH
     Route: 031
     Dates: start: 20090319

REACTIONS (1)
  - CARDIAC FAILURE [None]
